FAERS Safety Report 25629383 (Version 1)
Quarter: 2025Q3

REPORT INFORMATION
  Report Type: Spontaneous
  Country: US (occurrence: None)
  Receive Date: 20250731
  Receipt Date: 20250731
  Transmission Date: 20251020
  Serious: Yes (Disabling, Other)
  Sender: FDA-CTU
  Company Number: None

PATIENT
  Age: 77 Year
  Sex: Male
  Weight: 76.5 kg

DRUGS (10)
  1. FLUOROURACIL [Suspect]
     Active Substance: FLUOROURACIL
     Indication: Squamous cell carcinoma
     Dosage: OTHER QUANTITY : 40 SMALL DAB;?FREQUENCY : TWICE A DAY;?
     Route: 061
     Dates: start: 20250702, end: 20250730
  2. ASPIRIN [Concomitant]
     Active Substance: ASPIRIN
  3. TOPROL XL [Concomitant]
     Active Substance: METOPROLOL SUCCINATE
  4. Pro-Cardia / Nifedpine ER [Concomitant]
  5. Cpzar [Concomitant]
  6. LOSARTAN [Concomitant]
     Active Substance: LOSARTAN
  7. PROTONIX [Concomitant]
     Active Substance: PANTOPRAZOLE SODIUM
  8. LIPITOR [Concomitant]
     Active Substance: ATORVASTATIN CALCIUM
  9. ATORVASTATIN [Concomitant]
     Active Substance: ATORVASTATIN
  10. Calci [Concomitant]

REACTIONS (5)
  - Headache [None]
  - Hypoacusis [None]
  - Tinnitus [None]
  - Vision blurred [None]
  - Visual impairment [None]

NARRATIVE: CASE EVENT DATE: 20250728
